FAERS Safety Report 9513853 (Version 1)
Quarter: 2013Q1

REPORT INFORMATION
  Report Type: Spontaneous
  Country: US (occurrence: None)
  Receive Date: 20130305
  Receipt Date: 20130305
  Transmission Date: 20140127
  Serious: Yes (Disabling)
  Sender: FDA-Public Use
  Company Number: 163-21880-12102439

PATIENT
  Age: 56 Year
  Sex: Male
  Weight: 90.72 kg

DRUGS (10)
  1. REVLIMID [Suspect]
     Indication: PLASMA CELL MYELOMA
     Dosage: 5 MG, 1 IN 1 D, PO
     Route: 048
     Dates: start: 201208
  2. ACYCLOVIR (ACICLOVIR) (UNKNOWN) [Concomitant]
  3. B12 (VITAMIN-B-KOMPLEX STANDARD) (UNKNOWN) [Concomitant]
  4. BABY ASPIRIN (ACETYLSALICYLIC ACID) (UNKNOWN) [Concomitant]
  5. CALCIUM + D (OS-CAL) (UNKNOWN) [Concomitant]
  6. CENTRUM (CENTRUM) (UNKNOWN) [Concomitant]
  7. DEXAMETHASONE (DEXAMETHASONE) (UNKNOWN) [Concomitant]
  8. OMEPRAZOLE (OMEPRAZOLE) (UNKNOWN) [Concomitant]
  9. VITAMIN C [Concomitant]
  10. ZOMETA (ZOLEDRONIC ACID) (UNKNOWN) [Concomitant]

REACTIONS (1)
  - Dry skin [None]
